FAERS Safety Report 18526637 (Version 1)
Quarter: 2020Q4

REPORT INFORMATION
  Report Type: Spontaneous
  Country: US (occurrence: US)
  Receive Date: 20201120
  Receipt Date: 20201120
  Transmission Date: 20210114
  Serious: No
  Sender: FDA-Public Use
  Company Number: US-SA-2020SA323054

PATIENT

DRUGS (2)
  1. ALLEGRA ALLERGY [Suspect]
     Active Substance: FEXOFENADINE HYDROCHLORIDE
     Route: 065
  2. MAGNESIUM (SALT NOT SPECIFIED) [Suspect]
     Active Substance: MAGNESIUM
     Route: 065

REACTIONS (2)
  - Heart rate increased [Unknown]
  - Wrong technique in product usage process [Unknown]
